FAERS Safety Report 4388252-8 (Version None)
Quarter: 2004Q2

REPORT INFORMATION
  Report Type: 
  Country: None (occurrence: None)
  Receive Date: 20040625
  Receipt Date: 20040614
  Transmission Date: 20050107
  Serious: Yes (Life-Threatening)
  Sender: FDA-Public Use
  Company Number: 2004039792

PATIENT
  Age: 85 Year
  Sex: Female

DRUGS (4)
  1. DIFLUCAN [Suspect]
     Indication: ILL-DEFINED DISORDER
     Dosage: 200 MG (1 D)
     Dates: start: 20040211, end: 20040223
  2. ANTIINFECTIVES (ANTIINFECTIVES) [Suspect]
     Indication: PNEUMONIA
  3. DIGOXIN [Concomitant]
  4. OMEPRAZOLE [Concomitant]

REACTIONS (3)
  - BLOOD CREATININE INCREASED [None]
  - BLOOD UREA INCREASED [None]
  - RENAL IMPAIRMENT [None]
